FAERS Safety Report 7607685-7 (Version None)
Quarter: 2011Q3

REPORT INFORMATION
  Report Type: 
  Country: None (occurrence: None)
  Receive Date: 20110713
  Receipt Date: 20110517
  Transmission Date: 20111222
  Serious: Yes (Hospitalization)
  Sender: FDA-Public Use
  Company Number: PHHO2011RU06320

PATIENT
  Sex: Male
  Weight: 23.5 kg

DRUGS (3)
  1. PLACEBO [Suspect]
     Indication: CYSTIC FIBROSIS
     Dosage: CODE NOT BROKEN
     Route: 048
     Dates: start: 20110310
  2. BLINDED NO TREATMENT RECEIVED [Suspect]
     Indication: CYSTIC FIBROSIS
     Dosage: CODE NOT BROKEN
     Route: 048
     Dates: start: 20110310
  3. TOBRAMYCIN [Suspect]
     Indication: CYSTIC FIBROSIS
     Dosage: CODE NOT BROKEN
     Route: 048
     Dates: start: 20110310

REACTIONS (2)
  - LOWER LIMB FRACTURE [None]
  - INJURY [None]
